FAERS Safety Report 14873403 (Version 2)
Quarter: 2018Q4

REPORT INFORMATION
  Report Type: Spontaneous
  Country: US (occurrence: US)
  Receive Date: 20180510
  Receipt Date: 20181016
  Transmission Date: 20190204
  Serious: No
  Sender: FDA-Public Use
  Company Number: US-PFIZER INC-2018191308

PATIENT
  Age: 50 Year
  Sex: Female

DRUGS (1)
  1. XELJANZ XR [Suspect]
     Active Substance: TOFACITINIB CITRATE
     Dosage: 11 MG, ONCE DAILY
     Route: 048

REACTIONS (7)
  - Discomfort [Unknown]
  - Joint stiffness [Unknown]
  - Alanine aminotransferase increased [Unknown]
  - Mean cell haemoglobin decreased [Unknown]
  - Hypoaesthesia [Unknown]
  - Pain [Unknown]
  - Drug ineffective [Unknown]
